FAERS Safety Report 13321371 (Version 4)
Quarter: 2017Q3

REPORT INFORMATION
  Report Type: Spontaneous
  Country: US (occurrence: US)
  Receive Date: 20170309
  Receipt Date: 20170721
  Transmission Date: 20171127
  Serious: Yes (Congenital Anomaly, Other)
  Sender: FDA-Public Use
  Company Number: PHEH2017US006476

PATIENT
  Sex: Female

DRUGS (2)
  1. ZOFRAN [Suspect]
     Active Substance: ONDANSETRON HYDROCHLORIDE
     Indication: FOETAL EXPOSURE DURING PREGNANCY
     Route: 064
  2. ZOFRAN [Suspect]
     Active Substance: ONDANSETRON HYDROCHLORIDE
     Indication: FOETAL EXPOSURE DURING PREGNANCY
     Route: 064

REACTIONS (25)
  - Tonsillitis [Unknown]
  - Dyspnoea [Unknown]
  - Headache [Unknown]
  - Injury [Unknown]
  - Bronchitis [Unknown]
  - Migraine [Unknown]
  - Cleft palate [Unknown]
  - Ear infection [Unknown]
  - Oropharyngeal pain [Unknown]
  - Cleft lip [Unknown]
  - Foetal exposure during pregnancy [Unknown]
  - Otitis media [Unknown]
  - Speech disorder [Unknown]
  - Malocclusion [Unknown]
  - Kidney infection [Unknown]
  - Cholecystitis [Unknown]
  - Nose deformity [Unknown]
  - Astigmatism [Unknown]
  - Micrognathia [Unknown]
  - Pharyngitis [Unknown]
  - Dysuria [Unknown]
  - Viral infection [Unknown]
  - Cholelithiasis [Unknown]
  - Pyrexia [Unknown]
  - Rash [Unknown]
